FAERS Safety Report 13413457 (Version 2)
Quarter: 2018Q2

REPORT INFORMATION
  Report Type: Report from Study
  Country: AU (occurrence: AU)
  Receive Date: 20170407
  Receipt Date: 20180604
  Transmission Date: 20180711
  Serious: Yes (Other)
  Sender: FDA-Public Use
  Company Number: PHHY2017AU038848

PATIENT
  Age: 34 Year
  Sex: Female

DRUGS (5)
  1. MYCOPHENOLATE MOFETIL. [Concomitant]
     Active Substance: MYCOPHENOLATE MOFETIL
     Indication: PRODUCT USED FOR UNKNOWN INDICATION
     Dosage: UNK
     Route: 065
     Dates: start: 201510
  2. MYFORTIC [Suspect]
     Active Substance: MYCOPHENOLATE SODIUM
     Indication: LUPUS NEPHRITIS
     Dosage: 1440 MG, UNK
     Route: 048
     Dates: start: 20140110
  3. IRBESARTAN. [Concomitant]
     Active Substance: IRBESARTAN
     Indication: PRODUCT USED FOR UNKNOWN INDICATION
     Dosage: UNK
     Route: 065
  4. PERINDOPRIL [Concomitant]
     Active Substance: PERINDOPRIL
     Indication: PRODUCT USED FOR UNKNOWN INDICATION
     Dosage: UNK
     Route: 065
  5. PREDNISOLONE. [Concomitant]
     Active Substance: PREDNISOLONE
     Indication: PRODUCT USED FOR UNKNOWN INDICATION
     Route: 065

REACTIONS (13)
  - Orthopnoea [Unknown]
  - Productive cough [Unknown]
  - Chills [Unknown]
  - Microcytic anaemia [Unknown]
  - Dyspnoea paroxysmal nocturnal [Unknown]
  - Haemoptysis [Unknown]
  - Cardiomegaly [Unknown]
  - Haemoglobin decreased [Unknown]
  - Anisocytosis [Unknown]
  - Upper respiratory tract infection [Recovered/Resolved]
  - Thalassaemia alpha [Unknown]
  - Pleural effusion [Unknown]
  - Neutrophilia [Unknown]

NARRATIVE: CASE EVENT DATE: 2016
